FAERS Safety Report 23576398 (Version 1)
Quarter: 2024Q1

REPORT INFORMATION
  Report Type: Spontaneous
  Country: US (occurrence: None)
  Receive Date: 20240228
  Receipt Date: 20240228
  Transmission Date: 20240410
  Serious: Yes (Life-Threatening, Hospitalization)
  Sender: FDA-Public Use
  Company Number: None

PATIENT
  Age: 73 Year
  Sex: Male
  Weight: 85.5 kg

DRUGS (16)
  1. JARDIANCE [Suspect]
     Active Substance: EMPAGLIFLOZIN
     Indication: Blood glucose abnormal
     Dosage: OTHER QUANTITY : 1 TABLET(S);?
     Route: 048
     Dates: start: 20240216, end: 20240217
  2. defib/pacemaker [Concomitant]
  3. LIPITOR [Concomitant]
     Active Substance: ATORVASTATIN CALCIUM
  4. TRICOR [Concomitant]
     Active Substance: FENOFIBRATE
  5. ENTRESTO [Concomitant]
     Active Substance: SACUBITRIL\VALSARTAN
  6. METOPROLOL [Concomitant]
     Active Substance: METOPROLOL
  7. WARFARIN [Concomitant]
     Active Substance: WARFARIN
  8. COSOPT [Concomitant]
     Active Substance: DORZOLAMIDE HYDROCHLORIDE\TIMOLOL MALEATE
  9. Latarnoprost [Concomitant]
  10. RYBELSUS [Concomitant]
     Active Substance: SEMAGLUTIDE
  11. METANX [Concomitant]
     Active Substance: LEVOMEFOLATE CALCIUM\METHYLCOBALAMIN\PYRIDOXAL PHOSPHATE ANHYDROUS
  12. Vitamn C [Concomitant]
  13. Vitamn D [Concomitant]
  14. ECOTRIN [Concomitant]
     Active Substance: ASPIRIN
  15. PEPCID AC [Concomitant]
     Active Substance: FAMOTIDINE
  16. ZINC [Concomitant]
     Active Substance: PYRITHIONE ZINC\ZINC\ZINC CHLORIDE

REACTIONS (16)
  - Tremor [None]
  - Vomiting [None]
  - Nausea [None]
  - Pollakiuria [None]
  - Confusional state [None]
  - Irritability [None]
  - Balance disorder [None]
  - Hypophagia [None]
  - Loss of consciousness [None]
  - Asthenia [None]
  - Blood urine present [None]
  - Body temperature increased [None]
  - Sepsis [None]
  - Renal failure [None]
  - Arrhythmia [None]
  - Therapy cessation [None]

NARRATIVE: CASE EVENT DATE: 20240216
